FAERS Safety Report 8909818 (Version 2)
Quarter: 2012Q4

REPORT INFORMATION
  Report Type: 
  Country: DE (occurrence: DE)
  Receive Date: 20121115
  Receipt Date: 20121121
  Transmission Date: 20130627
  Serious: Yes (Hospitalization)
  Sender: FDA-Public Use
  Company Number: DE-JNJFOC-20121105127

PATIENT
  Sex: Female
  Weight: 66 kg

DRUGS (1)
  1. REMICADE [Suspect]
     Indication: CROHN^S DISEASE
     Dosage: 6 to 8 weeks,

the patient received approximately total 18 infusions
     Route: 042
     Dates: start: 20090824, end: 20120306

REACTIONS (5)
  - Breast cancer [Not Recovered/Not Resolved]
  - Crohn^s disease [Unknown]
  - Normochromic normocytic anaemia [Unknown]
  - Hypokalaemia [Unknown]
  - Thrombosis [Unknown]
